FAERS Safety Report 18659719 (Version 1)
Quarter: 2020Q4

REPORT INFORMATION
  Report Type: Report from Study
  Country: US (occurrence: US)
  Receive Date: 20201223
  Receipt Date: 20201223
  Transmission Date: 20210114
  Serious: Yes (Death, Hospitalization)
  Sender: FDA-Public Use
  Company Number: US-EXELIXIS-CABO-20032909

PATIENT
  Age: 78 Year
  Sex: Female

DRUGS (2)
  1. CABOMETYX [Suspect]
     Active Substance: CABOZANTINIB S-MALATE
     Indication: LUNG NEOPLASM MALIGNANT
     Dosage: 40 MG, QD
     Route: 048
     Dates: start: 20200914
  2. CABOMETYX [Suspect]
     Active Substance: CABOZANTINIB S-MALATE
     Indication: BRONCHIAL NEOPLASM

REACTIONS (5)
  - Blood pressure decreased [Unknown]
  - Illness [Unknown]
  - Death [Fatal]
  - Hepatic lesion [Unknown]
  - Off label use [Unknown]

NARRATIVE: CASE EVENT DATE: 20201125
